FAERS Safety Report 11376934 (Version 4)
Quarter: 2015Q3

REPORT INFORMATION
  Report Type: Spontaneous
  Country: US (occurrence: US)
  Receive Date: 20150813
  Receipt Date: 20150924
  Transmission Date: 20151125
  Serious: Yes (Life-Threatening, Hospitalization, Other)
  Sender: FDA-Public Use
  Company Number: US-ACTELION-A-NJ2015-121308

PATIENT
  Age: 58 Year
  Sex: Male

DRUGS (11)
  1. COUMADIN [Concomitant]
     Active Substance: WARFARIN SODIUM
  2. APIXABAN [Concomitant]
     Active Substance: APIXABAN
  3. TORSEMIDE. [Concomitant]
     Active Substance: TORSEMIDE
  4. REMODULIN [Concomitant]
     Active Substance: TREPROSTINIL
  5. ATORVASTATIN [Concomitant]
     Active Substance: ATORVASTATIN
  6. METOPROLOL [Concomitant]
     Active Substance: METOPROLOL
  7. TRACLEER [Suspect]
     Active Substance: BOSENTAN
     Indication: PULMONARY ARTERIAL HYPERTENSION
     Dosage: UNK
     Route: 048
     Dates: start: 2009, end: 20150814
  8. ALLOPURINOL. [Concomitant]
     Active Substance: ALLOPURINOL
  9. ASPIRIN. [Concomitant]
     Active Substance: ASPIRIN
  10. CALCIUM [Concomitant]
     Active Substance: CALCIUM
  11. OXYGEN. [Concomitant]
     Active Substance: OXYGEN

REACTIONS (6)
  - Lung transplant [Unknown]
  - Peripheral swelling [Unknown]
  - Chronic kidney disease [Unknown]
  - Pulmonary arterial hypertension [Recovering/Resolving]
  - Dyspnoea [Unknown]
  - Condition aggravated [Recovering/Resolving]

NARRATIVE: CASE EVENT DATE: 20150706
